FAERS Safety Report 19894439 (Version 2)
Quarter: 2021Q4

REPORT INFORMATION
  Report Type: Spontaneous
  Country: IT (occurrence: IT)
  Receive Date: 20210928
  Receipt Date: 20211102
  Transmission Date: 20220304
  Serious: Yes (Death, Hospitalization, Other)
  Sender: FDA-Public Use
  Company Number: IT-PHARMAMAR-2021PM000403

PATIENT
  Age: 74 Year
  Sex: Male
  Weight: 90 kg

DRUGS (19)
  1. ZEPZELCA [Suspect]
     Active Substance: LURBINECTEDIN
     Indication: Bladder cancer
     Dosage: 6.4 MILLIGRAM
     Route: 042
     Dates: start: 20210803, end: 20210824
  2. DENOSUMAB [Suspect]
     Active Substance: DENOSUMAB
     Indication: Bladder cancer
     Dosage: FREQUENCY: 6.4 MILLIGRAMFREQUENCY: 120 MILLIGRAM
     Dates: start: 20210810, end: 20210810
  3. NORVASC [Concomitant]
     Active Substance: AMLODIPINE BESYLATE
     Dosage: UNK
  4. LANSOPRAZOLE [Concomitant]
     Active Substance: LANSOPRAZOLE
     Dosage: UNK
  5. ACETAMINOPHEN\ASCORBIC ACID [Concomitant]
     Active Substance: ACETAMINOPHEN\ASCORBIC ACID
  6. ARIXTRA [Concomitant]
     Active Substance: FONDAPARINUX SODIUM
  7. CALCIUM CARBONATE [Concomitant]
     Active Substance: CALCIUM CARBONATE
     Dosage: UNK
  8. BROTIZOLAM [Concomitant]
     Active Substance: BROTIZOLAM
     Dosage: UNK
  9. CITALOPRAM [Concomitant]
     Active Substance: CITALOPRAM HYDROBROMIDE
     Dosage: UNK
  10. BISOPROLOL [Concomitant]
     Active Substance: BISOPROLOL
     Dosage: UNK
  11. LOYADA [Concomitant]
     Dosage: UNK
  12. VIRGANGEL [Concomitant]
     Dosage: FREQUENCY: 6.4 MILLIGRAMFREQUENCY: 120 MILLIGRAM
  13. SENNA SPP. SEED [Concomitant]
     Dosage: UNK
  14. COLIREI [Concomitant]
     Dosage: UNK
  15. MYCOSTATIN [Concomitant]
     Active Substance: NYSTATIN
     Dosage: UNK
  16. DIFLUCAN [Concomitant]
     Active Substance: FLUCONAZOLE
     Dosage: UNK
  17. POTASSIUM CHLORIDE [Concomitant]
     Active Substance: POTASSIUM CHLORIDE
     Dosage: UNK
  18. HALDOL [Concomitant]
     Active Substance: HALOPERIDOL
     Dosage: FREQUENCY: 6.4 MILLIGRAMFREQUENCY: 120 MILLIGRAM
  19. DECADRON [Concomitant]
     Active Substance: DEXAMETHASONE
     Dosage: UNK

REACTIONS (2)
  - Disease progression [Fatal]
  - Transient ischaemic attack [Recovered/Resolved]

NARRATIVE: CASE EVENT DATE: 20210913
